FAERS Safety Report 15230626 (Version 1)
Quarter: 2018Q3

REPORT INFORMATION
  Report Type: Spontaneous
  Country: US (occurrence: US)
  Receive Date: 20180707
  Receipt Date: 20180707
  Transmission Date: 20181010
  Serious: Yes (Hospitalization)
  Sender: FDA-Public Use
  Company Number: None

PATIENT
  Age: 49 Year
  Sex: Female
  Weight: 69.3 kg

DRUGS (2)
  1. REMICADE [Suspect]
     Active Substance: INFLIXIMAB
     Indication: COLITIS ULCERATIVE
     Dosage: ?          OTHER FREQUENCY:0,2,6 THEN Q8 WKS;?
     Route: 041
     Dates: start: 20180622, end: 20180707
  2. REMICADE [Suspect]
     Active Substance: INFLIXIMAB
     Indication: RHEUMATOID ARTHRITIS
     Dosage: ?          OTHER FREQUENCY:0,2,6 THEN Q8 WKS;?
     Route: 041
     Dates: start: 20180622, end: 20180707

REACTIONS (2)
  - Dry throat [None]
  - Pruritus generalised [None]

NARRATIVE: CASE EVENT DATE: 20180707
